FAERS Safety Report 8230236-3 (Version None)
Quarter: 2012Q1

REPORT INFORMATION
  Report Type: 
  Country: None (occurrence: None)
  Receive Date: 20120321
  Receipt Date: 20120321
  Transmission Date: 20120608
  Serious: No
  Sender: FDA-Public Use
  Company Number: None

PATIENT
  Sex: Female
  Weight: 69 kg

DRUGS (2)
  1. TAXOL [Suspect]
     Dosage: 236 MG
  2. CARBOPLATIN [Suspect]
     Dosage: 750 MG

REACTIONS (2)
  - LEUKOPENIA [None]
  - NEUTROPENIA [None]
